FAERS Safety Report 7899597-9 (Version None)
Quarter: 2011Q4

REPORT INFORMATION
  Report Type: 
  Country: None (occurrence: None)
  Receive Date: 20111107
  Receipt Date: 20110916
  Transmission Date: 20120403
  Serious: No
  Sender: FDA-Public Use
  Company Number: US-AMGEN-USASP2011047838

PATIENT
  Age: 64 Year
  Sex: Female

DRUGS (2)
  1. CELLCEPT [Concomitant]
     Dosage: 2 MG, QD
     Dates: start: 20110301
  2. ENBREL [Suspect]
     Indication: RHEUMATOID ARTHRITIS
     Dosage: 50 MG, QWK
     Dates: start: 20110501

REACTIONS (2)
  - SINUSITIS [None]
  - RHEUMATOID ARTHRITIS [None]
